FAERS Safety Report 8888456 (Version 1)
Quarter: 2012Q4

REPORT INFORMATION
  Report Type: 
  Country: AR (occurrence: AR)
  Receive Date: 20121106
  Receipt Date: 20121106
  Transmission Date: 20130627
  Serious: Yes (Other)
  Sender: FDA-Public Use
  Company Number: PHHY2012AR100768

PATIENT
  Sex: Female

DRUGS (2)
  1. EXFORGE [Suspect]
     Indication: TENSION
     Dosage: 1 DF, (160/10 mg) per day
  2. GALVUS [Suspect]
     Indication: DIABETES MELLITUS
     Dosage: 3 DF, per day

REACTIONS (2)
  - Mobility decreased [Recovering/Resolving]
  - Incorrect dose administered [Recovering/Resolving]
